FAERS Safety Report 6709431-8 (Version None)
Quarter: 2010Q2

REPORT INFORMATION
  Report Type: 
  Country: None (occurrence: None)
  Receive Date: 20100504
  Receipt Date: 20100429
  Transmission Date: 20101027
  Serious: Yes (Life-Threatening, Hospitalization, Other)
  Sender: FDA-Public Use
  Company Number: IE-ASTRAZENECA-2010SE17471

PATIENT
  Age: 758 Month
  Sex: Male

DRUGS (10)
  1. CRESTOR [Suspect]
     Indication: LIPID METABOLISM DISORDER
     Route: 048
     Dates: start: 20091013, end: 20100208
  2. ZESTRIL [Concomitant]
     Route: 048
  3. ESOMEPRAZOLE [Concomitant]
     Indication: GASTRITIS
     Route: 048
  4. ASPIRIN [Concomitant]
     Indication: CORONARY ARTERY DISEASE
  5. EZETROL [Concomitant]
     Indication: HYPERLIPIDAEMIA
  6. BISOPROLOL FUMARATE [Concomitant]
  7. NIVADIL [Concomitant]
  8. BUMETANIDE [Concomitant]
  9. CYTACON [Concomitant]
  10. THIAMINE [Concomitant]

REACTIONS (2)
  - RENAL TUBULAR NECROSIS [None]
  - RHABDOMYOLYSIS [None]
